FAERS Safety Report 6306866-2 (Version None)
Quarter: 2009Q3

REPORT INFORMATION
  Report Type: 
  Country: None (occurrence: None)
  Receive Date: 20090811
  Receipt Date: 20090811
  Transmission Date: 20100115
  Serious: Yes (Other)
  Sender: FDA-Public Use
  Company Number: None

PATIENT
  Age: 37 Year
  Sex: Female
  Weight: 47.6277 kg

DRUGS (1)
  1. YAZ [Suspect]
     Indication: DYSMENORRHOEA
     Dosage: 1 DAILY PO
     Route: 048
     Dates: start: 20080420, end: 20090410

REACTIONS (3)
  - BLINDNESS TRANSIENT [None]
  - MIGRAINE [None]
  - VISUAL FIELD DEFECT [None]
